FAERS Safety Report 20150249 (Version 1)
Quarter: 2021Q4

REPORT INFORMATION
  Report Type: Spontaneous
  Country: US (occurrence: US)
  Receive Date: 20211206
  Receipt Date: 20211206
  Transmission Date: 20220303
  Serious: Yes (Hospitalization)
  Sender: FDA-Public Use
  Company Number: US-AVET LIFESCIENCES LTD-2021-AVET-000068

PATIENT
  Sex: Male
  Weight: 79.6 kg

DRUGS (16)
  1. TACROLIMUS [Suspect]
     Active Substance: TACROLIMUS
     Indication: Product used for unknown indication
     Dosage: 1 MILLIGRAM IN THE MORNING AND 2 MG AT NIGHT (SINCE 5 YEAR)
  2. ALLOPURINOL [Concomitant]
     Active Substance: ALLOPURINOL
     Dosage: 100 MILLIGRAM DAILY
  3. AMILORIDE [Concomitant]
     Active Substance: AMILORIDE
     Dosage: 10 MILLIGRAM
  4. ATORVASTATIN [Concomitant]
     Active Substance: ATORVASTATIN
     Dosage: 40 MILLIGRAM NIGHTLY
  5. LATANOPROST [Concomitant]
     Active Substance: LATANOPROST
  6. TIMOLOL [Concomitant]
     Active Substance: TIMOLOL
  7. BUMETANIDE [Concomitant]
     Active Substance: BUMETANIDE
     Dosage: 2 MILLIGRAM, BID
  8. VITAMIN D [Concomitant]
     Active Substance: VITAMIN D NOS
  9. HYDRALAZINE [Concomitant]
     Active Substance: HYDRALAZINE HYDROCHLORIDE
     Dosage: 25 MILLIGRAM EVERY 8 HOURS
  10. METOLAZONE [Concomitant]
     Active Substance: METOLAZONE
     Dosage: 2.5 MILLIGRAM DAILY (3 TIMES A WEEK)
  11. METOPROLOL [Concomitant]
     Active Substance: METOPROLOL
     Dosage: 50 MILLIGRAM DAILY
  12. FERROUS SULFATE [Concomitant]
     Active Substance: FERROUS SULFATE
     Dosage: 324 MILLIGRAM DAILY
  13. SILDENAFIL [Concomitant]
     Active Substance: SILDENAFIL
     Dosage: 20 MILLIGRAM, 1?2 PILLS DAILY AS NEEDED
  14. PREDNISONE [Concomitant]
     Active Substance: PREDNISONE
     Dosage: 5 MILLIGRAM DAILY (SINCE 5 Y)
  15. EVEROLIMUS [Concomitant]
     Active Substance: EVEROLIMUS
     Dosage: 1 MILLIGRAM, BID, SINCE 16 MONTHS
  16. WARFARIN [Concomitant]
     Active Substance: WARFARIN
     Dosage: 5 MILLIGRAM FOR 4 DAYS A WEEK AND 7.5 MG FOR 3 DAYS A WEEK

REACTIONS (4)
  - Mania [Recovered/Resolved]
  - Psychotic behaviour [Recovered/Resolved]
  - Acute kidney injury [Recovered/Resolved]
  - Toxicity to various agents [Recovered/Resolved]
